FAERS Safety Report 10203947 (Version 2)
Quarter: 2014Q2

REPORT INFORMATION
  Report Type: Spontaneous
  Country: IT (occurrence: IT)
  Receive Date: 20140529
  Receipt Date: 20140625
  Transmission Date: 20141212
  Serious: Yes (Other)
  Sender: FDA-Public Use
  Company Number: IT-ROCHE-1408844

PATIENT
  Age: 72 Year
  Sex: Female

DRUGS (2)
  1. BONVIVA [Suspect]
     Indication: OSTEOPOROSIS POSTMENOPAUSAL
     Route: 048
  2. LONGASTATINA [Suspect]
     Indication: ADENOMA BENIGN
     Dosage: 30MG IN 2.5 ML
     Route: 058
     Dates: start: 20130527, end: 20140428

REACTIONS (1)
  - Acute lung injury [Not Recovered/Not Resolved]
